FAERS Safety Report 7646108-9 (Version None)
Quarter: 2011Q3

REPORT INFORMATION
  Report Type: 
  Country: None (occurrence: None)
  Receive Date: 20110801
  Receipt Date: 20110721
  Transmission Date: 20111222
  Serious: No
  Sender: FDA-Public Use
  Company Number: US-BIOGENIDEC-2010BI040730

PATIENT
  Sex: Female

DRUGS (2)
  1. IMMUNE GLOBULIN INTRAVENOUS (HUMAN) [Concomitant]
  2. TYSABRI [Suspect]
     Indication: MULTIPLE SCLEROSIS
     Route: 042
     Dates: start: 20080403

REACTIONS (8)
  - MUSCLE SPASMS [None]
  - ABASIA [None]
  - COORDINATION ABNORMAL [None]
  - VISUAL IMPAIRMENT [None]
  - BALANCE DISORDER [None]
  - PAIN [None]
  - BURNING SENSATION [None]
  - VOMITING [None]
